FAERS Safety Report 8389740-X (Version None)
Quarter: 2012Q2

REPORT INFORMATION
  Report Type: 
  Country: None (occurrence: None)
  Receive Date: 20120524
  Receipt Date: 20120524
  Transmission Date: 20120825
  Serious: Yes (Other)
  Sender: FDA-Public Use
  Company Number: None

PATIENT
  Age: 61 Year
  Sex: Female
  Weight: 54.4316 kg

DRUGS (1)
  1. DIVALPROEX SODIUM [Suspect]
     Indication: BIPOLAR DISORDER
     Dosage: 375 MG AT NIGHT EVERY NIGHT
     Dates: start: 20120428

REACTIONS (6)
  - AMNESIA [None]
  - ALOPECIA [None]
  - DEPRESSION [None]
  - ASTHENIA [None]
  - HEADACHE [None]
  - BLOOD IRON DECREASED [None]
